FAERS Safety Report 4771934-3 (Version None)
Quarter: 2005Q3

REPORT INFORMATION
  Report Type: 
  Country: None (occurrence: None)
  Receive Date: 20050916
  Receipt Date: 20050914
  Transmission Date: 20060218
  Serious: Yes (Hospitalization)
  Sender: FDA-Public Use
  Company Number: US-MERCK-0509USA01802

PATIENT
  Age: 45 Year
  Sex: Male

DRUGS (4)
  1. VIOXX [Suspect]
     Indication: ARTHRITIS
     Route: 048
     Dates: start: 20000101, end: 20020101
  2. VIOXX [Suspect]
     Indication: BACK PAIN
     Route: 048
     Dates: start: 20000101, end: 20020101
  3. TRAMADOL HYDROCHLORIDE [Concomitant]
     Route: 065
  4. SOMA [Concomitant]
     Route: 065

REACTIONS (1)
  - CARDIOVASCULAR DISORDER [None]
